FAERS Safety Report 7902584-5 (Version None)
Quarter: 2011Q4

REPORT INFORMATION
  Report Type: 
  Country: None (occurrence: None)
  Receive Date: 20111108
  Receipt Date: 20111024
  Transmission Date: 20120403
  Serious: Yes (Other)
  Sender: FDA-Public Use
  Company Number: IN-WATSON-2011-18437

PATIENT
  Age: 12 Year
  Sex: Male

DRUGS (1)
  1. LAMOTRIGINE [Suspect]
     Indication: CONVULSION
     Dosage: UNK
     Dates: start: 20090901

REACTIONS (3)
  - VANISHING BILE DUCT SYNDROME [None]
  - CHOLESTASIS [None]
  - RASH MACULAR [None]
